FAERS Safety Report 17971313 (Version 1)
Quarter: 2020Q3

REPORT INFORMATION
  Report Type: Spontaneous
  Country: US (occurrence: US)
  Receive Date: 20200701
  Receipt Date: 20200701
  Transmission Date: 20201103
  Serious: No
  Sender: FDA-Public Use
  Company Number: US-SOMERSET-2020-US-000199

PATIENT
  Sex: Female

DRUGS (1)
  1. DORZOLAMIDE HYDROCHLORIDE AND TIMOLOL MALEATE OPHTHALMIC [Suspect]
     Active Substance: DORZOLAMIDE HYDROCHLORIDE\TIMOLOL MALEATE
     Dosage: 1 DROP OU TWICE A DAY
     Dates: start: 20200610, end: 20200614

REACTIONS (3)
  - Abdominal pain [Recovered/Resolved]
  - Vision blurred [Recovered/Resolved]
  - Eye pain [Recovered/Resolved]

NARRATIVE: CASE EVENT DATE: 20200610
